FAERS Safety Report 4402730-4 (Version None)
Quarter: 2004Q3

REPORT INFORMATION
  Report Type: 
  Country: None (occurrence: None)
  Receive Date: 20040721
  Receipt Date: 20031003
  Transmission Date: 20050211
  Serious: No
  Sender: FDA-Public Use
  Company Number: US-BRISTOL-MYERS SQUIBB COMPANY-12401733

PATIENT
  Sex: Male

DRUGS (1)
  1. ESTRACE [Suspect]

REACTIONS (1)
  - TESTICULAR ATROPHY [None]
